FAERS Safety Report 5506668-0 (Version None)
Quarter: 2007Q4

REPORT INFORMATION
  Report Type: 
  Country: None (occurrence: None)
  Receive Date: 20071101
  Receipt Date: 20071009
  Transmission Date: 20080405
  Serious: Yes (Other)
  Sender: FDA-Public Use
  Company Number: 071004400

PATIENT
  Age: 61 Year
  Sex: Female

DRUGS (4)
  1. MUCINEX DM [Suspect]
     Indication: NASAL CONGESTION
     Dosage: 1TABL, ONCE, ORAL
     Route: 048
     Dates: start: 20071008, end: 20071008
  2. ATENOLOL [Concomitant]
  3. VITAMIN CAP [Concomitant]
  4. CALCIUM [Concomitant]

REACTIONS (6)
  - DYSPNOEA [None]
  - OEDEMA MOUTH [None]
  - PALATAL OEDEMA [None]
  - PHARYNGEAL OEDEMA [None]
  - PRURITUS GENERALISED [None]
  - REFUSAL OF TREATMENT BY PATIENT [None]
